FAERS Safety Report 5005019-8 (Version None)
Quarter: 2006Q2

REPORT INFORMATION
  Report Type: 
  Country: None (occurrence: None)
  Receive Date: 20060512
  Receipt Date: 20060503
  Transmission Date: 20061013
  Serious: Yes (Other)
  Sender: FDA-Public Use
  Company Number: 2006059754

PATIENT
  Age: 56 Year
  Sex: Male

DRUGS (2)
  1. PHENYTOIN [Suspect]
     Indication: ILL-DEFINED DISORDER
  2. RANITIDINE HCL [Suspect]
     Indication: ILL-DEFINED DISORDER

REACTIONS (4)
  - AGRANULOCYTOSIS [None]
  - EOSINOPHILIA [None]
  - HEPATITIS [None]
  - PYREXIA [None]
